FAERS Safety Report 7623045-7 (Version None)
Quarter: 2011Q3

REPORT INFORMATION
  Report Type: 
  Country: None (occurrence: None)
  Receive Date: 20110720
  Receipt Date: 20110714
  Transmission Date: 20111222
  Serious: Yes (Disabling, Other)
  Sender: FDA-Public Use
  Company Number: US-B.I. PHARMACEUTICALS,INC./RIDGEFIELD-2011-BP-06235PF

PATIENT
  Sex: Female
  Weight: 53.06 kg

DRUGS (24)
  1. CIMETIDINE [Concomitant]
  2. ESTRADIOL [Concomitant]
     Route: 048
  3. TRAZODONE [Concomitant]
     Route: 048
  4. DICYCLOMINE [Concomitant]
     Indication: ABDOMINAL PAIN UPPER
  5. HYDROCODONE [Concomitant]
     Indication: DYSPNOEA
     Route: 048
  6. METHOTREXATE [Concomitant]
     Route: 058
  7. FLUOXETINE [Concomitant]
     Route: 048
  8. VERAPAMIL [Concomitant]
     Dosage: 480 MG
     Route: 048
  9. PRILOSEC [Concomitant]
  10. LIDODERM [Concomitant]
     Indication: DYSPNOEA
  11. XANAX [Suspect]
     Indication: ANXIETY
     Dosage: 3 MG
     Route: 048
  12. LYRICA [Suspect]
     Indication: CARDIAC VALVE DISEASE
  13. ZOCOR [Concomitant]
     Route: 048
  14. PAXIL [Concomitant]
     Route: 048
  15. ASPIRIN [Concomitant]
     Route: 048
  16. SPIRIVA [Suspect]
     Indication: ASTHMA
     Dosage: 18 MCG
     Route: 055
     Dates: start: 20060601
  17. DICYCLOMINE [Concomitant]
     Indication: DYSPNOEA
     Route: 048
  18. HYDROCODONE [Concomitant]
     Indication: ABDOMINAL PAIN UPPER
  19. LIDODERM [Concomitant]
     Indication: ABDOMINAL PAIN UPPER
  20. SPIRIVA [Suspect]
     Indication: CHRONIC OBSTRUCTIVE PULMONARY DISEASE
  21. LYRICA [Suspect]
     Indication: FIBROMYALGIA
     Dosage: 225 MG
     Route: 048
     Dates: start: 20070101
  22. RANTIDINE [Concomitant]
     Route: 048
  23. DETROL LA [Concomitant]
     Indication: DYSPNOEA
  24. DETROL LA [Concomitant]
     Indication: ABDOMINAL PAIN UPPER

REACTIONS (4)
  - CARDIAC VALVE DISEASE [None]
  - FIBROMYALGIA [None]
  - MALAISE [None]
  - VITAMIN D DEFICIENCY [None]
